FAERS Safety Report 11646186 (Version 2)
Quarter: 2016Q2

REPORT INFORMATION
  Report Type: Spontaneous
  Country: US (occurrence: US)
  Receive Date: 20151020
  Receipt Date: 20160504
  Transmission Date: 20160815
  Serious: No
  Sender: FDA-Public Use
  Company Number: US-ROCHE-ITM201506IM018326

PATIENT
  Age: 73 Year
  Sex: Female
  Weight: 47.67 kg

DRUGS (4)
  1. ESBRIET [Suspect]
     Active Substance: PIRFENIDONE
     Indication: IDIOPATHIC PULMONARY FIBROSIS
     Dosage: THREE 267 MG CAPSULES THRICE A DAY, 2403 MG
     Route: 048
     Dates: start: 20150310, end: 20150928
  2. ESBRIET [Suspect]
     Active Substance: PIRFENIDONE
     Route: 048
  3. ESBRIET [Suspect]
     Active Substance: PIRFENIDONE
     Dosage: TWO 267 MG THRICE A DAY 1602 MG
     Route: 048
     Dates: start: 20150310
  4. ESBRIET [Suspect]
     Active Substance: PIRFENIDONE
     Dosage: 3 CAPSULES THRICE A DAY
     Route: 048
     Dates: start: 201402, end: 201406

REACTIONS (10)
  - Seasonal allergy [Unknown]
  - Rhinorrhoea [Unknown]
  - Sneezing [Unknown]
  - Drug ineffective [Unknown]
  - Upper respiratory tract infection [Unknown]
  - Rash [Recovering/Resolving]
  - Headache [Unknown]
  - Abdominal distension [Unknown]
  - Flatulence [Unknown]
  - Sinusitis [Unknown]

NARRATIVE: CASE EVENT DATE: 20150207
